FAERS Safety Report 4902012-8 (Version None)
Quarter: 2006Q1

REPORT INFORMATION
  Report Type: 
  Country: None (occurrence: None)
  Receive Date: 20060202
  Receipt Date: 20060202
  Transmission Date: 20060701
  Serious: Yes (Other)
  Sender: FDA-Public Use
  Company Number: None

PATIENT
  Sex: Female
  Weight: 116.1208 kg

DRUGS (2)
  1. AMIFOSTINE [Suspect]
     Indication: CERVIX CARCINOMA RECURRENT
     Dosage: 500MG SQ M-F
     Route: 058
     Dates: start: 20060125, end: 20060130
  2. AMIFOSTINE [Suspect]
     Indication: RADIOTHERAPY
     Dosage: 500MG SQ M-F
     Route: 058
     Dates: start: 20060125, end: 20060130

REACTIONS (5)
  - PYREXIA [None]
  - RASH [None]
  - RASH PAPULAR [None]
  - RASH PRURITIC [None]
  - URINARY TRACT INFECTION [None]
